FAERS Safety Report 8128996 (Version 2)
Quarter: 2012Q4

REPORT INFORMATION
  Report Type: Report from Study
  Country: DE (occurrence: DE)
  Receive Date: 20110909
  Receipt Date: 20120926
  Transmission Date: 20130627
  Serious: Yes (Other)
  Sender: FDA-Public Use
  Company Number: DE-ABBOTT-11P-062-0852155-00

PATIENT
  Age: 41 Year
  Sex: Male
  Weight: 84 kg

DRUGS (2)
  1. HUMIRA 40 MG/ 0.8 ML PRE-FILLED SYRINGE [Suspect]
     Indication: ANKYLOSING SPONDYLITIS
     Route: 058
     Dates: start: 20100906, end: 2011
  2. CORTISONE [Concomitant]
     Indication: ANKYLOSING SPONDYLITIS

REACTIONS (3)
  - Haemorrhoids [Unknown]
  - Incontinence [Not Recovered/Not Resolved]
  - Anal sphincter atony [Not Recovered/Not Resolved]
